FAERS Safety Report 6534665-5 (Version None)
Quarter: 2010Q1

REPORT INFORMATION
  Report Type: 
  Country: None (occurrence: None)
  Receive Date: 20100112
  Receipt Date: 20100104
  Transmission Date: 20100710
  Serious: Yes (Hospitalization)
  Sender: FDA-Public Use
  Company Number: GXKR2009PL13204

PATIENT
  Age: 52 Year
  Sex: Female

DRUGS (6)
  1. ZOLPIDEM (NGX) [Suspect]
     Indication: INSOMNIA
     Dosage: 0.5 DF, BID
     Route: 048
  2. ZOLPIDEM (NGX) [Suspect]
     Indication: HEADACHE
     Dosage: 0.5 DF, Q2-3H
     Route: 048
  3. ZOLPIDEM (NGX) [Suspect]
     Indication: STRESS
     Dosage: 1 DF, QD
     Route: 048
  4. ZOLPIDEM (NGX) [Suspect]
     Indication: FATIGUE
     Dosage: 50 MG/DAY
     Route: 048
  5. ZOLPIDEM (NGX) [Suspect]
     Indication: ANXIOLYTIC THERAPY
  6. ZOLPIDEM (NGX) [Suspect]
     Indication: DEPRESSED MOOD

REACTIONS (12)
  - ANXIETY [None]
  - ASTHENIA [None]
  - DEPRESSED MOOD [None]
  - DEPRESSION [None]
  - DRUG DEPENDENCE [None]
  - DRUG WITHDRAWAL SYNDROME [None]
  - HEADACHE [None]
  - HYPERHIDROSIS [None]
  - HYPERTONIA [None]
  - INSOMNIA [None]
  - INTENTIONAL DRUG MISUSE [None]
  - TENSION [None]
